FAERS Safety Report 22019609 (Version 1)
Quarter: 2023Q1

REPORT INFORMATION
  Report Type: Spontaneous
  Country: ES (occurrence: ES)
  Receive Date: 20230222
  Receipt Date: 20230222
  Transmission Date: 20230418
  Serious: Yes (Other)
  Sender: FDA-Public Use
  Company Number: None

PATIENT
  Age: 65 Year
  Sex: Female
  Weight: 77 kg

DRUGS (2)
  1. BEVACIZUMAB [Suspect]
     Active Substance: BEVACIZUMAB
     Indication: Colon cancer
     Dosage: 385 MG, QW,5MG/KG - 385MG IS ADMINISTERED IN WEEKLY CYCLES
     Route: 042
     Dates: start: 20221123
  2. OXALIPLATIN [Suspect]
     Active Substance: OXALIPLATIN
     Indication: Colon cancer
     Dosage: 149 MG, QW,85MG/M2 IN WEEKLY CYCLES - 149MG EACH CYCLE
     Route: 042
     Dates: start: 20221123

REACTIONS (2)
  - Diarrhoea [Recovering/Resolving]
  - Mucosal inflammation [Recovering/Resolving]

NARRATIVE: CASE EVENT DATE: 20230127
